FAERS Safety Report 9562801 (Version 2)
Quarter: 2013Q4

REPORT INFORMATION
  Report Type: Report from Study
  Country: US (occurrence: US)
  Receive Date: 20130927
  Receipt Date: 20131015
  Transmission Date: 20140711
  Serious: Yes (Congenital Anomaly, Other)
  Sender: FDA-Public Use
  Company Number: US-GILEAD-2013-0084088

PATIENT
  Sex: 0

DRUGS (4)
  1. EMTRICITABINE/TENOFOVIR DISOPROXIL FUMARATE [Suspect]
     Indication: HIV INFECTION
     Route: 064
  2. DARUNAVIR [Suspect]
     Indication: HIV INFECTION
     Route: 064
  3. ZIDOVUDINE [Suspect]
     Indication: HIV INFECTION
     Route: 064
  4. RITONAVIR [Suspect]
     Indication: HIV INFECTION
     Route: 064

REACTIONS (1)
  - Congenital foot malformation [Unknown]
